FAERS Safety Report 8499478-6 (Version None)
Quarter: 2012Q2

REPORT INFORMATION
  Report Type: 
  Country: None (occurrence: None)
  Receive Date: 20120628
  Receipt Date: 20120615
  Transmission Date: 20120825
  Serious: Yes (Hospitalization)
  Sender: FDA-Public Use
  Company Number: UTC-020021

PATIENT
  Age: 56 Year
  Sex: Female

DRUGS (1)
  1. TYVASO [Suspect]
     Indication: PULMONARY ARTERIAL HYPERTENSION
     Dosage: (54 MCG), INHALATION
     Route: 055
     Dates: start: 20120531

REACTIONS (3)
  - RETCHING [None]
  - COUGH [None]
  - BREATH ODOUR [None]
